FAERS Safety Report 13040736 (Version 5)
Quarter: 2017Q1

REPORT INFORMATION
  Report Type: Spontaneous
  Country: GB (occurrence: GB)
  Receive Date: 20161219
  Receipt Date: 20170323
  Transmission Date: 20170428
  Serious: Yes (Death, Hospitalization)
  Sender: FDA-Public Use
  Company Number: GB-PFIZER INC-2016579047

PATIENT
  Age: 54 Year
  Sex: Male

DRUGS (6)
  1. WATER FOR INJECTION [Suspect]
     Active Substance: WATER
     Dosage: 32 ML, FIVE TIMES A WEEK
     Route: 058
     Dates: start: 20161128
  2. DEFEROXAMINE MESILATE [Suspect]
     Active Substance: DEFEROXAMINE MESYLATE
     Dosage: 2.5 G, FIVE TIMES A WEEK
     Route: 058
     Dates: start: 20161128
  3. DEFEROXAMINE MESILATE [Suspect]
     Active Substance: DEFEROXAMINE MESYLATE
     Dosage: 2.5 G, FIVE TIMES A WEEK
     Route: 058
     Dates: start: 20161201, end: 201701
  4. DEFEROXAMINE MESILATE [Suspect]
     Active Substance: DEFEROXAMINE MESYLATE
     Dosage: UNK
     Route: 058
  5. WATER FOR INJECTION [Suspect]
     Active Substance: WATER
     Indication: MEDICATION DILUTION
     Dosage: 32 ML, FIVE TIMES A WEEK
     Route: 058
     Dates: start: 20161201, end: 201701
  6. WATER FOR INJECTION [Suspect]
     Active Substance: WATER
     Dosage: 32 ML, FIVE TIMES A WEEK
     Route: 058
     Dates: start: 20161201

REACTIONS (3)
  - Lower respiratory tract infection [Unknown]
  - Death [Fatal]
  - Incorrect drug administration rate [Unknown]

NARRATIVE: CASE EVENT DATE: 2016
